FAERS Safety Report 6389469-3 (Version None)
Quarter: 2009Q4

REPORT INFORMATION
  Report Type: 
  Country: None (occurrence: None)
  Receive Date: 20091006
  Receipt Date: 20090921
  Transmission Date: 20100525
  Serious: No
  Sender: FDA-Public Use
  Company Number: GB-ROCHE-658131

PATIENT
  Age: 7 Year
  Sex: Female

DRUGS (2)
  1. TAMIFLU [Suspect]
     Indication: DRUG USE FOR UNKNOWN INDICATION
     Dosage: WITHDRAWN
     Route: 065
     Dates: start: 20090829, end: 20090831
  2. ALBUTEROL [Concomitant]
     Indication: ASTHMA
     Dosage: 2 PUFFS EACH DAY

REACTIONS (2)
  - EPISTAXIS [None]
  - INCORRECT DOSE ADMINISTERED [None]
